FAERS Safety Report 8214771-X (Version None)
Quarter: 2012Q1

REPORT INFORMATION
  Report Type: 
  Country: None (occurrence: None)
  Receive Date: 20120229
  Receipt Date: 20110814
  Transmission Date: 20120608
  Serious: Yes (Hospitalization)
  Sender: FDA-Public Use
  Company Number: PHEH2011US01522

PATIENT
  Age: 45 Year
  Sex: Male
  Weight: 89 kg

DRUGS (11)
  1. NEORAL [Suspect]
     Indication: PROPHYLAXIS AGAINST TRANSPLANT REJECTION
     Dosage: 500 MG, DAILY, ORAL, 300 MG, DAILY, ORAL
     Route: 048
     Dates: start: 20110725
  2. NEORAL [Suspect]
     Indication: PROPHYLAXIS AGAINST TRANSPLANT REJECTION
     Dosage: 500 MG, DAILY, ORAL, 300 MG, DAILY, ORAL
     Route: 048
     Dates: start: 20110312
  3. BACTRIM [Concomitant]
  4. SIMVASTATIN [Concomitant]
  5. CALCIUM WITH VITAMIN D (CALCIUM PHOSPHATE, CALCIUM SODIUM LACTATE, ERG [Concomitant]
  6. ASPIRIN [Concomitant]
  7. MULTIVITAMINS (ASCORBIC ACID, ERGOCALCIFEROL, FOLIC ACID, NICOTINAMIDE [Concomitant]
  8. PRILOSEC [Concomitant]
  9. MYCOPHENOLATE SODIUM (MYCOPHENOLATE SODIUM) [Concomitant]
  10. PREDNISONE TAB [Concomitant]
  11. LEVOTHYROXINE SODIUM [Concomitant]

REACTIONS (2)
  - DEPRESSED MOOD [None]
  - GRAND MAL CONVULSION [None]
